FAERS Safety Report 16033723 (Version 1)
Quarter: 2019Q1

REPORT INFORMATION
  Report Type: Spontaneous
  Country: CN (occurrence: CN)
  Receive Date: 20190305
  Receipt Date: 20190305
  Transmission Date: 20190418
  Serious: Yes (Life-Threatening)
  Sender: FDA-Public Use
  Company Number: CN-009507513-1903CHN000401

PATIENT
  Age: 11 Year
  Sex: Female
  Weight: 29.3 kg

DRUGS (2)
  1. TIENAM [Suspect]
     Active Substance: CILASTATIN SODIUM\IMIPENEM
     Indication: PYREXIA
     Dosage: 0.45G
     Route: 041
     Dates: start: 20190107, end: 20190107
  2. TIENAM [Suspect]
     Active Substance: CILASTATIN SODIUM\IMIPENEM
     Indication: AGRANULOCYTOSIS
     Dosage: 0.45G, ADMINISTRATION FREQUENCY 4
     Route: 041
     Dates: start: 20181230, end: 20190104

REACTIONS (3)
  - Blood pressure decreased [Recovering/Resolving]
  - Depressed level of consciousness [Recovering/Resolving]
  - Pulmonary haemorrhage [Recovering/Resolving]

NARRATIVE: CASE EVENT DATE: 20190107
